FAERS Safety Report 4954228-2 (Version None)
Quarter: 2006Q1

REPORT INFORMATION
  Report Type: 
  Country: None (occurrence: None)
  Receive Date: 20060327
  Receipt Date: 20051024
  Transmission Date: 20060701
  Serious: Yes (Hospitalization, Disabling, Other)
  Sender: FDA-Public Use
  Company Number: US-MERCK-0510USA08781

PATIENT
  Age: 72 Year
  Sex: Male
  Weight: 86 kg

DRUGS (6)
  1. VIOXX [Suspect]
     Indication: MONARTHRITIS
     Route: 048
     Dates: start: 19990701, end: 20020809
  2. VIOXX [Suspect]
     Route: 048
     Dates: start: 20020801
  3. VIOXX [Suspect]
     Route: 048
     Dates: start: 20030201, end: 20040101
  4. PLENDIL [Concomitant]
     Route: 048
  5. PLENDIL [Concomitant]
     Route: 048
     Dates: start: 20021104
  6. COLCHICINE [Concomitant]
     Route: 048

REACTIONS (20)
  - ACUTE MYOCARDIAL INFARCTION [None]
  - ARTERIOSCLEROSIS CORONARY ARTERY [None]
  - ASTHMA [None]
  - ATELECTASIS [None]
  - BACK PAIN [None]
  - BLOOD PRESSURE INADEQUATELY CONTROLLED [None]
  - BURSITIS [None]
  - CELLULITIS [None]
  - CHONDROCALCINOSIS PYROPHOSPHATE [None]
  - CORONARY ARTERY DISEASE [None]
  - DIARRHOEA [None]
  - EPIGASTRIC DISCOMFORT [None]
  - FUNGAL RASH [None]
  - GASTROOESOPHAGEAL REFLUX DISEASE [None]
  - HEMIPARESIS [None]
  - HYPERLIPIDAEMIA [None]
  - HYPERTENSION [None]
  - MONARTHRITIS [None]
  - NECK PAIN [None]
  - OBESITY [None]
